FAERS Safety Report 8196560-8 (Version None)
Quarter: 2012Q1

REPORT INFORMATION
  Report Type: 
  Country: None (occurrence: None)
  Receive Date: 20120229
  Receipt Date: 20111018
  Transmission Date: 20120608
  Serious: No
  Sender: FDA-Public Use
  Company Number: US-2011-10767

PATIENT
  Age: 84 Year
  Sex: Female

DRUGS (11)
  1. DOCUSATE (DOCUSATE) [Concomitant]
  2. ALDACTONE (POTASSIUM CANRENOATE) [Concomitant]
  3. ENALAPRIL MALEATE [Concomitant]
  4. SAMSCA [Suspect]
     Dates: start: 20110916
  5. PRILOSEC (OMEPRAZOLE MAGNESIUM) [Concomitant]
  6. BUMEX [Concomitant]
  7. KLOR-CON [Concomitant]
  8. SYNTHROID [Concomitant]
  9. VITAMIN D (COLECALCIFEROL) [Concomitant]
  10. CARAFATE [Concomitant]
  11. METOLAZONE [Concomitant]

REACTIONS (1)
  - DYSGEUSIA [None]
